FAERS Safety Report 10607601 (Version 2)
Quarter: 2015Q1

REPORT INFORMATION
  Report Type: Spontaneous
  Country: US (occurrence: US)
  Receive Date: 20141125
  Receipt Date: 20150129
  Transmission Date: 20150720
  Serious: Yes (Hospitalization, Other)
  Sender: FDA-Public Use
  Company Number: US-TEVA-524249USA

PATIENT
  Age: 81 Year
  Sex: Female
  Weight: 53.57 kg

DRUGS (1)
  1. PROAIR HFA [Suspect]
     Active Substance: ALBUTEROL SULFATE
     Indication: ASTHMA
     Route: 065
     Dates: end: 20141117

REACTIONS (6)
  - Dyspnoea [Recovered/Resolved]
  - Tremor [Not Recovered/Not Resolved]
  - Hypersensitivity [Recovered/Resolved]
  - Productive cough [Not Recovered/Not Resolved]
  - Pneumonia [Recovered/Resolved]
  - Drug ineffective [Not Recovered/Not Resolved]

NARRATIVE: CASE EVENT DATE: 20141013
